FAERS Safety Report 15795560 (Version 1)
Quarter: 2019Q1

REPORT INFORMATION
  Report Type: Spontaneous
  Country: US (occurrence: US)
  Receive Date: 20190107
  Receipt Date: 20190107
  Transmission Date: 20190417
  Serious: No
  Sender: FDA-Public Use
  Company Number: US-BIOMARINAP-US-2018-121308

PATIENT
  Age: 18 Year
  Sex: Male

DRUGS (1)
  1. VIMIZIM [Suspect]
     Active Substance: ELOSULFASE ALFA
     Indication: PRODUCT USED FOR UNKNOWN INDICATION
     Route: 042

REACTIONS (4)
  - Diarrhoea [Unknown]
  - Pyrexia [Recovered/Resolved]
  - Gastroenteritis viral [Unknown]
  - Nausea [Unknown]

NARRATIVE: CASE EVENT DATE: 20181225
